FAERS Safety Report 6632130-8 (Version None)
Quarter: 2010Q1

REPORT INFORMATION
  Report Type: 
  Country: None (occurrence: None)
  Receive Date: 20100312
  Receipt Date: 20100226
  Transmission Date: 20100710
  Serious: Yes (Hospitalization)
  Sender: FDA-Public Use
  Company Number: US-JNJCH-2010006151

PATIENT

DRUGS (1)
  1. ASPIRIN [Suspect]
     Indication: DIAGNOSTIC PROCEDURE
     Dosage: TEXT:UNKNOWN
     Route: 048

REACTIONS (3)
  - ABDOMINAL PAIN [None]
  - NAUSEA [None]
  - VOMITING [None]
